FAERS Safety Report 16737109 (Version 13)
Quarter: 2021Q4

REPORT INFORMATION
  Report Type: Report from Study
  Country: CO (occurrence: CO)
  Receive Date: 20190823
  Receipt Date: 20211014
  Transmission Date: 20220303
  Serious: Yes (Life-Threatening, Hospitalization, Other)
  Sender: FDA-Public Use
  Company Number: PHHY2019CO163312

PATIENT
  Age: 69 Year
  Sex: Female
  Weight: 68 kg

DRUGS (8)
  1. ELTROMBOPAG OLAMINE [Suspect]
     Active Substance: ELTROMBOPAG OLAMINE
     Indication: Immune thrombocytopenia
     Dosage: 25 MG, QD
     Route: 048
     Dates: start: 20181210
  2. ELTROMBOPAG OLAMINE [Suspect]
     Active Substance: ELTROMBOPAG OLAMINE
     Dosage: 50 MG (2X25 MG), UNK
     Route: 048
  3. ELTROMBOPAG OLAMINE [Suspect]
     Active Substance: ELTROMBOPAG OLAMINE
     Dosage: 25 MG, QD
     Route: 048
  4. ELTROMBOPAG OLAMINE [Suspect]
     Active Substance: ELTROMBOPAG OLAMINE
     Dosage: 50 MG, QD
     Route: 048
  5. ELTROMBOPAG OLAMINE [Suspect]
     Active Substance: ELTROMBOPAG OLAMINE
     Dosage: 25 MG, Q12H
     Route: 048
     Dates: start: 201812, end: 201908
  6. ELTROMBOPAG OLAMINE [Suspect]
     Active Substance: ELTROMBOPAG OLAMINE
     Dosage: 25 MG, Q12H
     Route: 048
     Dates: start: 202001
  7. ELTROMBOPAG OLAMINE [Suspect]
     Active Substance: ELTROMBOPAG OLAMINE
     Dosage: 50 MG, QD (2 TABLETS OF 25 MG)
     Route: 048
  8. LOSARTAN [Suspect]
     Active Substance: LOSARTAN
     Indication: Hypertension
     Dosage: 500 MG, QD
     Route: 048

REACTIONS (19)
  - Dizziness [Recovered/Resolved]
  - Insomnia [Unknown]
  - Decreased appetite [Unknown]
  - Weight decreased [Unknown]
  - Petechiae [Recovered/Resolved]
  - Abdominal pain upper [Unknown]
  - Platelet count decreased [Unknown]
  - Diarrhoea [Unknown]
  - Platelet count abnormal [Unknown]
  - Contusion [Recovered/Resolved]
  - Blood pressure abnormal [Unknown]
  - Product dose omission issue [Unknown]
  - Confusional state [Unknown]
  - Anxiety [Unknown]
  - Fibromyalgia [Unknown]
  - Pain [Unknown]
  - Yellow skin [Unknown]
  - Balance disorder [Unknown]
  - Abdominal discomfort [Unknown]

NARRATIVE: CASE EVENT DATE: 20190901
